FAERS Safety Report 12292207 (Version 1)
Quarter: 2016Q2

REPORT INFORMATION
  Report Type: Spontaneous
  Country: US (occurrence: US)
  Receive Date: 20160421
  Receipt Date: 20160421
  Transmission Date: 20160815
  Serious: No
  Sender: FDA-Public Use
  Company Number: US-AMGEN-USASP2016045508

PATIENT
  Age: 73 Year
  Sex: Male

DRUGS (1)
  1. REPATHA [Suspect]
     Active Substance: EVOLOCUMAB
     Indication: HYPERCHOLESTEROLAEMIA
     Dosage: UNK
     Route: 065

REACTIONS (9)
  - Confusional state [Unknown]
  - Activities of daily living impaired [Unknown]
  - Cough [Not Recovered/Not Resolved]
  - Pain [Unknown]
  - Headache [Unknown]
  - Vomiting [Unknown]
  - Sinus disorder [Unknown]
  - Influenza like illness [Unknown]
  - Fatigue [Unknown]
